FAERS Safety Report 13060904 (Version 1)
Quarter: 2016Q4

REPORT INFORMATION
  Report Type: Spontaneous
  Country: US (occurrence: US)
  Receive Date: 20161225
  Receipt Date: 20161225
  Transmission Date: 20170207
  Serious: No
  Sender: FDA-Public Use
  Company Number: US-ABBVIE-16P-163-1703515-00

PATIENT
  Age: 88 Year
  Sex: Male
  Weight: 65.7 kg

DRUGS (2)
  1. ELIGARD 22.5MG  (NON-ABBVIE) [Concomitant]
     Indication: PROSTATE CANCER
     Route: 065
     Dates: start: 20160816
  2. LUPRON DEPOT [Suspect]
     Active Substance: LEUPROLIDE ACETATE
     Indication: PROSTATE CANCER
     Route: 058
     Dates: start: 20160816, end: 20160816

REACTIONS (2)
  - Drug dispensing error [Unknown]
  - Wrong drug administered [Unknown]

NARRATIVE: CASE EVENT DATE: 20160816
